FAERS Safety Report 20558673 (Version 1)
Quarter: 2022Q1

REPORT INFORMATION
  Report Type: Spontaneous
  Country: IT (occurrence: IT)
  Receive Date: 20220307
  Receipt Date: 20220307
  Transmission Date: 20220423
  Serious: Yes (Other)
  Sender: FDA-Public Use
  Company Number: IT-CELLTRION INC.-2022IT002430

PATIENT

DRUGS (17)
  1. RITUXIMAB [Suspect]
     Active Substance: RITUXIMAB
     Indication: Hairy cell leukaemia
     Dosage: 375 MG/M2 DOSE 1
  2. RITUXIMAB [Suspect]
     Active Substance: RITUXIMAB
     Dosage: 375 MG/M2 DOSE 2
  3. RITUXIMAB [Suspect]
     Active Substance: RITUXIMAB
     Dosage: 375 MG/M2 DOSE 3
  4. RITUXIMAB [Suspect]
     Active Substance: RITUXIMAB
     Dosage: 375 MG/M2 DOSE 4
  5. RITUXIMAB [Suspect]
     Active Substance: RITUXIMAB
     Dosage: 375 MG/M2 DOSE 5
  6. RITUXIMAB [Suspect]
     Active Substance: RITUXIMAB
     Dosage: 375 MG/M2 DOSE 6
  7. RITUXIMAB [Suspect]
     Active Substance: RITUXIMAB
     Dosage: 375 MG/M2 DOSE 7
  8. RITUXIMAB [Suspect]
     Active Substance: RITUXIMAB
     Dosage: 375 MG/M2 DOSE 8
  9. PENTOSTATIN [Suspect]
     Active Substance: PENTOSTATIN
     Indication: Hairy cell leukaemia
     Dosage: REPEATED TWICE
  10. CLADRIBINE [Suspect]
     Active Substance: CLADRIBINE
     Indication: Hairy cell leukaemia
     Dosage: REPEATED THREE TIMES
  11. INTERFERON [Suspect]
     Active Substance: INTERFERON
     Indication: Hairy cell leukaemia
     Dosage: REPEATED SEVERAL TIMES
  12. VEMURAFENIB [Suspect]
     Active Substance: VEMURAFENIB
     Indication: Hairy cell leukaemia
     Dosage: MONOTHERAPY FOR 14 WEEKS
  13. VEMURAFENIB [Suspect]
     Active Substance: VEMURAFENIB
     Dosage: 960 MG, BID
  14. VEMURAFENIB [Suspect]
     Active Substance: VEMURAFENIB
     Dosage: 480 MG, BID FOR 2 WEEKS
  15. VEMURAFENIB [Suspect]
     Active Substance: VEMURAFENIB
     Dosage: 720 MG, BID (DELIVERED FOR 12 WEEKS)
  16. VEMURAFENIB [Suspect]
     Active Substance: VEMURAFENIB
     Dosage: 240 MG, BID ALTERNATING 4 WEEKS ON WITH 4 WEEKS OFF-THERAPY
  17. VEMURAFENIB [Suspect]
     Active Substance: VEMURAFENIB
     Dosage: PHASE-2 TRIAL OF VEMURAFENIB 8 WEEKS

REACTIONS (3)
  - Hairy cell leukaemia recurrent [Recovered/Resolved]
  - Infusion related reaction [Unknown]
  - Off label use [Unknown]

NARRATIVE: CASE EVENT DATE: 20130101
